FAERS Safety Report 5823335-4 (Version None)
Quarter: 2008Q3

REPORT INFORMATION
  Report Type: 
  Country: None (occurrence: None)
  Receive Date: 20080725
  Receipt Date: 20070608
  Transmission Date: 20090109
  Serious: No
  Sender: FDA-Public Use
  Company Number: US-AMGEN-KDL228999

PATIENT
  Sex: Male
  Weight: 104.4 kg

DRUGS (6)
  1. PROCRIT [Suspect]
     Indication: ANAEMIA
     Dates: end: 20050101
  2. GLYBURIDE [Concomitant]
  3. DIOVAN [Concomitant]
  4. COREG [Concomitant]
  5. ASPIRIN [Concomitant]
  6. PERCOCET [Concomitant]

REACTIONS (1)
  - HAEMOCHROMATOSIS [None]
